FAERS Safety Report 6043214-X (Version None)
Quarter: 2009Q1

REPORT INFORMATION
  Report Type: 
  Country: None (occurrence: None)
  Receive Date: 20090119
  Receipt Date: 20080401
  Transmission Date: 20090719
  Serious: No
  Sender: FDA-Public Use
  Company Number: US-ABBOTT-08P-163-0445101-00

PATIENT
  Sex: Male
  Weight: 21.338 kg

DRUGS (1)
  1. BIAXIN SUSPENSION 250MG/5ML [Suspect]
     Indication: SINUSITIS
     Route: 048
     Dates: start: 20080313, end: 20080313

REACTIONS (4)
  - DYSGEUSIA [None]
  - NAUSEA [None]
  - ORAL DISCOMFORT [None]
  - RETCHING [None]
